FAERS Safety Report 10200303 (Version 2)
Quarter: 2014Q3

REPORT INFORMATION
  Report Type: Report from Study
  Country: NL (occurrence: NL)
  Receive Date: 20140527
  Receipt Date: 20140819
  Transmission Date: 20150326
  Serious: Yes (Other)
  Sender: FDA-Public Use
  Company Number: PHHY2014NL063027

PATIENT
  Sex: Male

DRUGS (7)
  1. ILARIS [Suspect]
     Active Substance: CANAKINUMAB
     Dosage: 150 MG, 1 X PER 8 WEEKS
     Route: 058
     Dates: start: 20140520
  2. METOPROLOL [Concomitant]
     Active Substance: METOPROLOL
     Dates: start: 20100331
  3. ILARIS [Suspect]
     Active Substance: CANAKINUMAB
     Indication: MUCKLE-WELLS SYNDROME
     Route: 058
     Dates: start: 20110707
  4. ILARIS [Suspect]
     Active Substance: CANAKINUMAB
     Dosage: 150 MG, 1 X PER 8 WEEKS
     Route: 058
     Dates: start: 20111103
  5. PARACETAMOL [Concomitant]
     Active Substance: ACETAMINOPHEN
     Dates: start: 20130610
  6. SIMVASTATIN. [Concomitant]
     Active Substance: SIMVASTATIN
     Dates: start: 20131009
  7. HYDROCHLOROTHIAZIDE. [Concomitant]
     Active Substance: HYDROCHLOROTHIAZIDE
     Dosage: UNK
     Dates: start: 20100331

REACTIONS (2)
  - Diabetes mellitus [Recovering/Resolving]
  - Polyuria [Unknown]
